FAERS Safety Report 10241581 (Version 1)
Quarter: 2014Q2

REPORT INFORMATION
  Report Type: Spontaneous
  Country: US (occurrence: US)
  Receive Date: 20140617
  Receipt Date: 20140617
  Transmission Date: 20141212
  Serious: No
  Sender: FDA-Public Use
  Company Number: US-009507513-1405USA000616

PATIENT
  Age: 59 Year
  Sex: Female
  Weight: 136.5 kg

DRUGS (4)
  1. ZEGERID [Suspect]
     Indication: GASTROOESOPHAGEAL REFLUX DISEASE
     Dosage: UNK, QD
     Route: 048
     Dates: start: 20140420
  2. ZEGERID [Suspect]
     Indication: DYSPEPSIA
  3. ZEGERID [Suspect]
     Indication: FLATULENCE
  4. METFORMIN [Concomitant]
     Indication: PRODUCT USED FOR UNKNOWN INDICATION
     Dosage: 500 MG, QD
     Dates: start: 2011

REACTIONS (1)
  - Abdominal pain [Not Recovered/Not Resolved]
